FAERS Safety Report 8785151 (Version 1)
Quarter: 2012Q4

REPORT INFORMATION
  Report Type: Spontaneous
  Country: US (occurrence: None)
  Receive Date: 20120831
  Receipt Date: 20120831
  Transmission Date: 20130627
  Serious: Yes (Other)
  Sender: FDA-Public Use
  Company Number: 2012P1055051

PATIENT
  Sex: Female

DRUGS (3)
  1. HYDROCHLOROTHIAZIDE [Suspect]
     Dates: end: 2010
  2. LISINOPRIL [Suspect]
     Dates: end: 2010
  3. AMLODIPINE [Suspect]
     Indication: HYPERTENSION
     Dates: start: 2011

REACTIONS (2)
  - Cutaneous lupus erythematosus [None]
  - Hypertension [None]
